FAERS Safety Report 8953918 (Version 6)
Quarter: 2013Q3

REPORT INFORMATION
  Report Type: Spontaneous
  Country: US (occurrence: US)
  Receive Date: 20121206
  Receipt Date: 20130822
  Transmission Date: 20140515
  Serious: Yes (Hospitalization, Other)
  Sender: FDA-Public Use
  Company Number: US-MERCK-1204USA04191

PATIENT
  Sex: Female
  Weight: 72.56 kg

DRUGS (5)
  1. FOSAMAX [Suspect]
     Indication: OSTEOPOROSIS
     Dosage: 70 MG, QW
     Route: 048
     Dates: start: 20030618, end: 20080309
  2. FOSAMAX [Suspect]
     Indication: OSTEOPOROSIS
     Dosage: 70 MG, UNK
     Route: 048
     Dates: start: 2000
  3. VERAPAMIL [Concomitant]
     Indication: ATRIAL FIBRILLATION
     Dosage: 240 MG, QD
  4. AMIODARONE [Concomitant]
     Indication: ATRIAL FIBRILLATION
     Dosage: 200 MG, QD
  5. ALENDRONATE SODIUM [Suspect]
     Indication: OSTEOPOROSIS
     Dosage: 70 MG, QW
     Route: 048
     Dates: start: 20080314, end: 20100806

REACTIONS (40)
  - Femur fracture [Not Recovered/Not Resolved]
  - Intramedullary rod insertion [Unknown]
  - Intramedullary rod insertion [Unknown]
  - Basal cell carcinoma [Unknown]
  - Knee arthroplasty [Recovered/Resolved]
  - Knee arthroplasty [Unknown]
  - Knee arthroplasty [Unknown]
  - Colectomy [Unknown]
  - Colon cancer [Unknown]
  - Femur fracture [Not Recovered/Not Resolved]
  - Vitamin D deficiency [Unknown]
  - Hyperparathyroidism [Unknown]
  - Thyroid disorder [Unknown]
  - Blood disorder [Unknown]
  - Hypertension [Unknown]
  - Angiopathy [Unknown]
  - Vascular operation [Unknown]
  - Arthritis [Unknown]
  - Renal cyst [Unknown]
  - Hernia [Unknown]
  - Atelectasis [Unknown]
  - Rib fracture [Recovered/Resolved]
  - Rib fracture [Recovered/Resolved]
  - Scoliosis [Unknown]
  - Hyperlipidaemia [Unknown]
  - Osteopenia [Unknown]
  - Anaemia postoperative [Recovered/Resolved]
  - Thyroid neoplasm [Unknown]
  - Aortic valve calcification [Unknown]
  - Aortic stenosis [Unknown]
  - Arteriosclerosis coronary artery [Unknown]
  - Body height decreased [Unknown]
  - Vascular operation [Unknown]
  - Vascular operation [Unknown]
  - Angiopathy [Unknown]
  - Angiopathy [Unknown]
  - Escherichia urinary tract infection [Unknown]
  - Arthralgia [Unknown]
  - Back pain [Unknown]
  - Musculoskeletal pain [Unknown]
